FAERS Safety Report 17444515 (Version 3)
Quarter: 2020Q3

REPORT INFORMATION
  Report Type: Spontaneous
  Country: US (occurrence: US)
  Receive Date: 20200221
  Receipt Date: 20200825
  Transmission Date: 20201102
  Serious: Yes (Other)
  Sender: FDA-Public Use
  Company Number: US-GILEAD-2020-0451448

PATIENT
  Age: 49 Year
  Sex: Female

DRUGS (14)
  1. BACLOFEN. [Concomitant]
     Active Substance: BACLOFEN
  2. VIREAD [Suspect]
     Active Substance: TENOFOVIR DISOPROXIL FUMARATE
     Indication: HIV INFECTION
     Dosage: UNK
     Route: 048
     Dates: start: 2001, end: 2006
  3. PERCOCET [Concomitant]
     Active Substance: ACETAMINOPHEN\OXYCODONE HYDROCHLORIDE
  4. DILAUDID [Concomitant]
     Active Substance: HYDROMORPHONE HYDROCHLORIDE
  5. TRUVADA [Suspect]
     Active Substance: EMTRICITABINE\TENOFOVIR DISOPROXIL FUMARATE
     Indication: HIV INFECTION
     Dosage: UNK
     Route: 048
     Dates: start: 2010, end: 2015
  6. VIIBRYD [Concomitant]
     Active Substance: VILAZODONE HYDROCHLORIDE
  7. XANAX [Concomitant]
     Active Substance: ALPRAZOLAM
  8. MOTRIN [Concomitant]
     Active Substance: IBUPROFEN
  9. LEVAQUIN [Concomitant]
     Active Substance: LEVOFLOXACIN
  10. ATRIPLA [Suspect]
     Active Substance: EFAVIRENZ\EMTRICITABINE\TENOFOVIR DISOPROXIL FUMARATE
     Indication: HIV INFECTION
     Dosage: UNK
     Route: 048
     Dates: start: 2006, end: 2010
  11. LORTAB [Concomitant]
     Active Substance: ACETAMINOPHEN\HYDROCODONE BITARTRATE
  12. NORVIR [Concomitant]
     Active Substance: RITONAVIR
  13. BIKTARVY [Concomitant]
     Active Substance: BICTEGRAVIR SODIUM\EMTRICITABINE\TENOFOVIR ALAFENAMIDE FUMARATE
     Indication: HIV INFECTION
  14. ROBAXIN?750 [Concomitant]
     Active Substance: METHOCARBAMOL

REACTIONS (11)
  - Fracture [Unknown]
  - Bone loss [Unknown]
  - Bone density decreased [Not Recovered/Not Resolved]
  - Emotional distress [Not Recovered/Not Resolved]
  - Osteonecrosis [Unknown]
  - Osteoarthritis [Not Recovered/Not Resolved]
  - Economic problem [Not Recovered/Not Resolved]
  - Pain [Not Recovered/Not Resolved]
  - Liver function test abnormal [Unknown]
  - Osteoporosis [Unknown]
  - Liver function test decreased [Recovered/Resolved]

NARRATIVE: CASE EVENT DATE: 201301
